FAERS Safety Report 7209591-9 (Version None)
Quarter: 2011Q1

REPORT INFORMATION
  Report Type: 
  Country: None (occurrence: None)
  Receive Date: 20110104
  Receipt Date: 20101227
  Transmission Date: 20110831
  Serious: Yes (Hospitalization)
  Sender: FDA-Public Use
  Company Number: US-PFIZER INC-2010179884

PATIENT
  Age: 66 Year
  Sex: Female

DRUGS (2)
  1. MAGNESIUM [Concomitant]
     Dosage: UNK
  2. TORISEL [Suspect]
     Indication: ENDOMETRIAL CANCER
     Dosage: 25MG OVER 30MINUTES ON WEEKLY, CYCLE=6 WEEKS
     Route: 042
     Dates: start: 20101111, end: 20101209

REACTIONS (1)
  - HYPOMAGNESAEMIA [None]
